FAERS Safety Report 6449307-7 (Version None)
Quarter: 2009Q4

REPORT INFORMATION
  Report Type: 
  Country: None (occurrence: None)
  Receive Date: 20091120
  Receipt Date: 20091106
  Transmission Date: 20100525
  Serious: Yes (Other)
  Sender: FDA-Public Use
  Company Number: US-ELI_LILLY_AND_COMPANY-US200911001766

PATIENT
  Age: 56 Year
  Sex: Female

DRUGS (2)
  1. FORTEO [Suspect]
     Dosage: 20 UG, DAILY (1/D)
     Dates: start: 20090701, end: 20090901
  2. KEPRA [Concomitant]
     Dates: end: 20091001

REACTIONS (4)
  - CONVULSION [None]
  - FALL [None]
  - MOUTH HAEMORRHAGE [None]
  - RIB FRACTURE [None]
